FAERS Safety Report 23455780 (Version 1)
Quarter: 2024Q1

REPORT INFORMATION
  Report Type: Spontaneous
  Country: US (occurrence: US)
  Receive Date: 20240130
  Receipt Date: 20240130
  Transmission Date: 20240410
  Serious: No
  Sender: FDA-Public Use
  Company Number: US-STRIDES ARCOLAB LIMITED-2023SP011824

PATIENT
  Age: 58 Year
  Sex: Female

DRUGS (8)
  1. METHOTREXATE [Suspect]
     Active Substance: METHOTREXATE
     Indication: Still^s disease
     Dosage: UNK
     Route: 065
     Dates: start: 202109
  2. MYCOPHENOLATE MOFETIL [Suspect]
     Active Substance: MYCOPHENOLATE MOFETIL
     Indication: Still^s disease
     Dosage: UNK
     Route: 065
     Dates: start: 202211
  3. MYCOPHENOLATE MOFETIL [Suspect]
     Active Substance: MYCOPHENOLATE MOFETIL
     Dosage: UNK (DOSE OF MYCOPHENOLATE-MOFETIL WAS INCREASED)
     Route: 065
  4. INFLIXIMAB [Concomitant]
     Active Substance: INFLIXIMAB
     Indication: Still^s disease
     Dosage: UNK
     Route: 065
     Dates: start: 202109
  5. ADALIMUMAB [Concomitant]
     Active Substance: ADALIMUMAB\ISOPROPYL ALCOHOL
     Indication: Still^s disease
     Dosage: UNK
     Route: 065
     Dates: start: 202109
  6. MEDROL [Concomitant]
     Active Substance: METHYLPREDNISOLONE
     Indication: Still^s disease
     Dosage: UNK
     Route: 065
     Dates: start: 202109
  7. MEDROL [Concomitant]
     Active Substance: METHYLPREDNISOLONE
     Indication: Proteinuria
  8. MEDROL [Concomitant]
     Active Substance: METHYLPREDNISOLONE
     Indication: Renal amyloidosis

REACTIONS (2)
  - Vomiting [Unknown]
  - Off label use [Unknown]
